FAERS Safety Report 24223135 (Version 1)
Quarter: 2024Q3

REPORT INFORMATION
  Report Type: Spontaneous
  Country: GB (occurrence: GB)
  Receive Date: 20240819
  Receipt Date: 20240819
  Transmission Date: 20241017
  Serious: Yes (Life-Threatening, Hospitalization, Other)
  Sender: PFIZER
  Company Number: None

PATIENT
  Age: 29 Year
  Sex: Female
  Weight: 65 kg

DRUGS (5)
  1. SULFASALAZINE [Suspect]
     Active Substance: SULFASALAZINE
     Indication: Rheumatoid arthritis
     Dosage: 1.5 G, DAILY
     Dates: start: 20240708
  2. SULFASALAZINE [Suspect]
     Active Substance: SULFASALAZINE
     Dosage: 2 G, DAILY
     Dates: start: 202408, end: 20240812
  3. LANSOPRAZOLE [Concomitant]
     Active Substance: LANSOPRAZOLE
     Indication: Dyspepsia
     Dates: start: 20240701
  4. HYDROXYCHLOROQUINE [Concomitant]
     Active Substance: HYDROXYCHLOROQUINE
     Indication: Rheumatoid arthritis
     Dates: start: 20240701, end: 20240814
  5. NAPROXEN [Concomitant]
     Active Substance: NAPROXEN
     Indication: Rheumatoid arthritis
     Dates: start: 20240701

REACTIONS (12)
  - Rash macular [Not Recovered/Not Resolved]
  - Liver function test increased [Not Recovered/Not Resolved]
  - Periorbital swelling [Recovering/Resolving]
  - Swelling [Not Recovered/Not Resolved]
  - Vomiting [Recovering/Resolving]
  - Alanine aminotransferase increased [Unknown]
  - COVID-19 [Unknown]
  - Joint range of motion decreased [Unknown]
  - Drug hypersensitivity [Recovering/Resolving]
  - Dermatitis [Unknown]
  - Pyrexia [Unknown]
  - Joint swelling [Unknown]

NARRATIVE: CASE EVENT DATE: 20240809
